FAERS Safety Report 7621982-0 (Version None)
Quarter: 2011Q3

REPORT INFORMATION
  Report Type: 
  Country: None (occurrence: None)
  Receive Date: 20110720
  Receipt Date: 20110718
  Transmission Date: 20111222
  Serious: Yes (Death, Hospitalization)
  Sender: FDA-Public Use
  Company Number: TW-BRISTOL-MYERS SQUIBB COMPANY-15562333

PATIENT
  Age: 59 Year
  Sex: Male
  Weight: 51 kg

DRUGS (4)
  1. PACLITAXEL [Suspect]
     Indication: GASTRIC CANCER
     Dosage: 1,8 AND 15TH EVERY 4 WEEKS CYCLE(28DAYS).LAST RECEIVED ON 18JAN2011.
     Route: 042
     Dates: start: 20110111
  2. NORVASC [Concomitant]
     Dates: start: 20101208
  3. PRIMPERAN TAB [Concomitant]
     Dates: start: 20101208
  4. ULTRACET [Concomitant]
     Dates: start: 20101223

REACTIONS (5)
  - ANGINA PECTORIS [None]
  - ACUTE CORONARY SYNDROME [None]
  - RESPIRATORY FAILURE [None]
  - STRESS CARDIOMYOPATHY [None]
  - RENAL FAILURE ACUTE [None]
